FAERS Safety Report 17580473 (Version 2)
Quarter: 2020Q3

REPORT INFORMATION
  Report Type: Spontaneous
  Country: US (occurrence: US)
  Receive Date: 20200325
  Receipt Date: 20200910
  Transmission Date: 20201102
  Serious: Yes (Other)
  Sender: FDA-Public Use
  Company Number: US-GILEAD-2020-0456181

PATIENT
  Age: 40 Year
  Sex: Male
  Weight: 68.03 kg

DRUGS (10)
  1. CINACALCET. [Concomitant]
     Active Substance: CINACALCET
  2. SPIRONOLACTONE. [Concomitant]
     Active Substance: SPIRONOLACTONE
  3. ATRIPLA [Suspect]
     Active Substance: EFAVIRENZ\EMTRICITABINE\TENOFOVIR DISOPROXIL FUMARATE
     Indication: HIV INFECTION
     Dosage: UNK
     Route: 048
     Dates: start: 2009, end: 2013
  4. TRIUMEQ [Concomitant]
     Active Substance: ABACAVIR SULFATE\DOLUTEGRAVIR SODIUM\LAMIVUDINE
  5. CARVEDIOL [Concomitant]
     Active Substance: CARVEDILOL
  6. CALCIUM ACETATE. [Concomitant]
     Active Substance: CALCIUM ACETATE
  7. IRBESARTAN. [Concomitant]
     Active Substance: IRBESARTAN
  8. TELMISARTAN. [Concomitant]
     Active Substance: TELMISARTAN
  9. NIFEDIPINE. [Concomitant]
     Active Substance: NIFEDIPINE
  10. DOXERCALCIFEROL. [Concomitant]
     Active Substance: DOXERCALCIFEROL

REACTIONS (6)
  - Renal failure [Not Recovered/Not Resolved]
  - Pain [Recovered/Resolved]
  - Anhedonia [Not Recovered/Not Resolved]
  - Anxiety [Not Recovered/Not Resolved]
  - Economic problem [Not Recovered/Not Resolved]
  - Emotional distress [Recovered/Resolved]

NARRATIVE: CASE EVENT DATE: 201504
